FAERS Safety Report 9791877 (Version 2)
Quarter: 2014Q1

REPORT INFORMATION
  Report Type: Spontaneous
  Country: US (occurrence: US)
  Receive Date: 20140102
  Receipt Date: 20140102
  Transmission Date: 20141002
  Serious: Yes (Other)
  Sender: FDA-Public Use
  Company Number: US-PFIZER INC-2013339491

PATIENT
  Sex: Male

DRUGS (2)
  1. INLYTA [Suspect]
     Indication: RENAL CELL CARCINOMA
     Dosage: STRENGTH 1MG
     Route: 048
     Dates: start: 20120511
  2. INLYTA [Suspect]
     Dosage: 7 MG, 2X/DAY STRENGTH 5MG
     Dates: start: 20130307

REACTIONS (1)
  - Diarrhoea [Unknown]
